FAERS Safety Report 4284769-5 (Version None)
Quarter: 2004Q1

REPORT INFORMATION
  Report Type: 
  Country: None (occurrence: None)
  Receive Date: 20040202
  Receipt Date: 20040121
  Transmission Date: 20041129
  Serious: Yes (Other)
  Sender: FDA-Public Use
  Company Number: JP-JNJFOC-20040104961

PATIENT
  Sex: Male

DRUGS (4)
  1. FENTANYL [Suspect]
     Indication: CANCER PAIN
     Dosage: 7.5 MG; TRANSDERMAL (SEE IMAGE)
     Route: 063
     Dates: start: 20031201, end: 20040121
  2. FENTANYL [Suspect]
     Indication: CANCER PAIN
     Dosage: 7.5 MG; TRANSDERMAL (SEE IMAGE)
     Route: 063
     Dates: start: 20040121
  3. ROXATIDINE ACETATE HCL [Concomitant]
  4. LACTOBACILLUS CASEI (LACTOBACILLUS ACIDOPHILUS) [Concomitant]

REACTIONS (1)
  - SICK SINUS SYNDROME [None]
